FAERS Safety Report 7422821-3 (Version None)
Quarter: 2011Q2

REPORT INFORMATION
  Report Type: 
  Country: None (occurrence: None)
  Receive Date: 20110419
  Receipt Date: 20091122
  Transmission Date: 20111010
  Serious: Yes (Death, Hospitalization, Other)
  Sender: FDA-Public Use
  Company Number: US-BAYER-200939977NA

PATIENT
  Age: 62 Year
  Sex: Female
  Weight: 68.934 kg

DRUGS (26)
  1. TRASYLOL [Suspect]
     Indication: CORONARY ARTERY BYPASS
     Dosage: 1 ML, TEST DOSE
     Route: 042
     Dates: start: 20000329, end: 20000329
  2. DOPAMINE HCL [Concomitant]
     Dosage: UNK
     Route: 042
     Dates: start: 20000329
  3. NEO-SYNEPHRINOL [Concomitant]
     Dosage: UNK
     Route: 042
     Dates: start: 20000329, end: 20000329
  4. PROPULSID [Concomitant]
     Dosage: 10 MG, UNK
     Route: 048
     Dates: start: 20000323
  5. ALBUMIN (HUMAN) [Concomitant]
     Dosage: CORONARY BYPASS PUMP
     Route: 042
     Dates: start: 20000329
  6. FUROSEMIDE [Concomitant]
     Dosage: 50 MG, CORONARY BYPASS PUMP
     Route: 042
     Dates: start: 20000329
  7. PROTAMINE SULFATE [Concomitant]
     Dosage: CORONARY BYPASS PUMP
     Route: 042
     Dates: start: 20000329, end: 20000329
  8. CLONIDINE [Concomitant]
     Dosage: 0.1 MG, UNK
     Route: 048
     Dates: start: 20000323
  9. PLAVIX [Concomitant]
     Dosage: 75 MG, UNK
     Route: 048
     Dates: start: 20000324
  10. FUROSEMIDE [Concomitant]
  11. RED BLOOD CELLS [Concomitant]
     Dosage: 2 U, UNK
     Route: 042
     Dates: start: 20000329, end: 20000329
  12. TRASYLOL [Suspect]
     Dosage: 100CC, BOLUS
     Route: 042
     Dates: start: 20000329, end: 20000329
  13. TRASYLOL [Suspect]
     Dosage: 200CC, PUMP PRIME
     Dates: start: 20000329, end: 20000329
  14. SOLU-MEDROL [Concomitant]
     Dosage: UNK
     Route: 042
     Dates: start: 20000329
  15. ISOVUE-128 [Concomitant]
     Indication: CATHETERISATION CARDIAC
     Dosage: 60CC
     Dates: start: 20000327
  16. MANNITOL [Concomitant]
     Dosage: 25 G, CORONARY BYPASS PUMP
     Route: 042
     Dates: start: 20000329
  17. PERSANTINE [Concomitant]
     Indication: CARDIAC STRESS TEST
     Dosage: UNK
     Dates: start: 20000323
  18. TRASYLOL [Suspect]
     Dosage: 50CC/HR, INFUSION
     Route: 042
     Dates: start: 20000329, end: 20000329
  19. PREVACID [Concomitant]
     Dosage: 30 MG, UNK
     Route: 048
     Dates: start: 20000322
  20. RED BLOOD CELLS [Concomitant]
     Dosage: 2 U, UNK
     Route: 042
     Dates: start: 20000407
  21. INSULIN [Concomitant]
     Dosage: UNK
     Route: 058
  22. INSULIN [Concomitant]
     Dosage: CORONARY BYPASS PUMP
     Route: 042
     Dates: start: 20000329
  23. SULAR [Concomitant]
     Dosage: 20 MG, UNK
     Route: 048
     Dates: start: 20000322
  24. ROCALTROL [Concomitant]
     Dosage: 0.5 ?G, UNK
     Route: 048
     Dates: start: 20000324
  25. HEPARIN [Concomitant]
     Dosage: 15000 U, CORONARY BYPASS PUMP
     Route: 042
     Dates: start: 20000329, end: 20000330
  26. VANCOMYCIN [Concomitant]
     Dosage: 1 G, UNK
     Route: 042
     Dates: start: 20000329

REACTIONS (14)
  - DEATH [None]
  - ANHEDONIA [None]
  - RENAL INJURY [None]
  - RENAL FAILURE [None]
  - EMOTIONAL DISTRESS [None]
  - UNEVALUABLE EVENT [None]
  - STRESS [None]
  - ANXIETY [None]
  - MULTI-ORGAN FAILURE [None]
  - RENAL IMPAIRMENT [None]
  - FEAR [None]
  - PAIN [None]
  - INJURY [None]
  - NEPHROPATHY [None]
